FAERS Safety Report 24006654 (Version 4)
Quarter: 2024Q3

REPORT INFORMATION
  Report Type: Report from Study
  Country: NL (occurrence: NL)
  Receive Date: 20240624
  Receipt Date: 20240807
  Transmission Date: 20241017
  Serious: Yes (Other)
  Sender: MYLAN
  Company Number: NL-ABBVIE-5722687

PATIENT
  Sex: Female

DRUGS (12)
  1. CLOZAPINE [Suspect]
     Active Substance: CLOZAPINE
     Indication: Parkinson^s disease
     Dosage: INCREASED 18.75 MG FOR NIGHT
     Route: 065
  2. CARBIDOPA\LEVODOPA [Suspect]
     Active Substance: CARBIDOPA\LEVODOPA
     Indication: Parkinson^s disease
     Dosage: LD: 0.60ML BIR: 0.60ML HIR: 0.60ML LIR: 0.40ML ED: 0.10ML, GOES TO 24 HOURS
     Route: 058
     Dates: start: 20240325, end: 20240326
  3. CARBIDOPA\LEVODOPA [Suspect]
     Active Substance: CARBIDOPA\LEVODOPA
     Dosage: BIR: 0.60ML LIR: 0.30ML ED: 0.10ML, REMAINS AT 24 HOURS
     Route: 058
     Dates: start: 20240326, end: 20240327
  4. CARBIDOPA\LEVODOPA [Suspect]
     Active Substance: CARBIDOPA\LEVODOPA
     Dosage: LIR: 0.33ML, REMAINS AT 24 HOURS
     Route: 058
     Dates: start: 20240327, end: 20240329
  5. CARBIDOPA\LEVODOPA [Suspect]
     Active Substance: CARBIDOPA\LEVODOPA
     Dosage: LD: 0.60ML BIR: 0.63ML HIR: 0.63ML LIR: 0.36ML ED: 0.15ML, REMAINS AT 24 HOURS
     Route: 058
     Dates: start: 20240329, end: 20240403
  6. CARBIDOPA\LEVODOPA [Suspect]
     Active Substance: CARBIDOPA\LEVODOPA
     Dosage: REMAINS AT 16 HOURS
     Route: 058
     Dates: start: 20240403, end: 20240404
  7. CARBIDOPA\LEVODOPA [Suspect]
     Active Substance: CARBIDOPA\LEVODOPA
     Dosage: LD: 0.60ML BIR: 0.69ML/H HIR: 0.69ML/H LIR: 0.42ML/H ED: 0.25ML, GOES TO 24 HOURS
     Route: 058
     Dates: start: 20240404, end: 20240409
  8. CARBIDOPA\LEVODOPA [Suspect]
     Active Substance: CARBIDOPA\LEVODOPA
     Dosage: LD: 0.60ML BIR: 0.72ML HIR: 0.72ML LIR: 0.42ML ED: 0.30ML, REMAINS AT 24 HOURS
     Route: 058
     Dates: start: 20240409, end: 20240605
  9. CARBIDOPA\LEVODOPA [Suspect]
     Active Substance: CARBIDOPA\LEVODOPA
     Dosage: LD: 0.60ML, BIR:  0.74ML/H, HIR: 0.74ML/H, LIR: 0.42ML/H, ED: 0.30ML;
     Route: 058
     Dates: start: 20240605, end: 20240610
  10. CARBIDOPA\LEVODOPA [Suspect]
     Active Substance: CARBIDOPA\LEVODOPA
     Dosage: LD: 0.60ML, BIR: 0.77ML/H, HIR: 0.77ML/H, LIR: 0.42ML/H, ED: 0.30ML; REMAINS AT 24 HOURS
     Route: 058
     Dates: start: 20240610, end: 20240703
  11. CARBIDOPA\LEVODOPA [Suspect]
     Active Substance: CARBIDOPA\LEVODOPA
     Dosage: LD: 0.60ML, BIR: 0.81ML/H, HIR: 0.81ML/H, LIR: 0.42ML/H, ED: 0.30ML, REMAINS AT 24 HOURS
     Route: 058
     Dates: start: 20240703
  12. ROPINIROLE [Concomitant]
     Active Substance: ROPINIROLE
     Indication: Product used for unknown indication
     Dosage: INCREASED TO 12 MG IN THE MORNING, BEING PHASED OUT
     Route: 065

REACTIONS (36)
  - Hallucination [Recovering/Resolving]
  - Deep brain stimulation [Not Recovered/Not Resolved]
  - Breast cancer [Unknown]
  - Hysterectomy [Not Recovered/Not Resolved]
  - Dystonia [Not Recovered/Not Resolved]
  - Parkinson^s disease [Not Recovered/Not Resolved]
  - Freezing phenomenon [Not Recovered/Not Resolved]
  - Stress [Not Recovered/Not Resolved]
  - Speech disorder [Not Recovered/Not Resolved]
  - Motor dysfunction [Recovering/Resolving]
  - Vitreous floaters [Not Recovered/Not Resolved]
  - Emotional distress [Not Recovered/Not Resolved]
  - Gait disturbance [Not Recovered/Not Resolved]
  - Altered visual depth perception [Not Recovered/Not Resolved]
  - Withdrawal syndrome [Not Recovered/Not Resolved]
  - Feeling abnormal [Not Recovered/Not Resolved]
  - On and off phenomenon [Not Recovered/Not Resolved]
  - Mood altered [Not Recovered/Not Resolved]
  - Unevaluable event [Not Recovered/Not Resolved]
  - Hyperkinesia [Recovering/Resolving]
  - Dyskinesia [Not Recovered/Not Resolved]
  - Extra dose administered [Unknown]
  - Infusion site infection [Not Recovered/Not Resolved]
  - Loss of personal independence in daily activities [Not Recovered/Not Resolved]
  - Walking aid user [Not Recovered/Not Resolved]
  - Sensitive skin [Not Recovered/Not Resolved]
  - Wheelchair user [Not Recovered/Not Resolved]
  - Tension [Unknown]
  - Weight increased [Not Recovered/Not Resolved]
  - Dysarthria [Not Recovered/Not Resolved]
  - Vision blurred [Not Recovered/Not Resolved]
  - Tremor [Not Recovered/Not Resolved]
  - Muscle rigidity [Not Recovered/Not Resolved]
  - Off label use [Not Recovered/Not Resolved]
  - Therapeutic product effect delayed [Not Recovered/Not Resolved]
  - Incorrect dose administered [Unknown]

NARRATIVE: CASE EVENT DATE: 20240701
